FAERS Safety Report 20035799 (Version 4)
Quarter: 2022Q1

REPORT INFORMATION
  Report Type: Report from Study
  Country: US (occurrence: US)
  Receive Date: 20211104
  Receipt Date: 20220116
  Transmission Date: 20220423
  Serious: Yes (Other)
  Sender: FDA-Public Use
  Company Number: US-REGENERON PHARMACEUTICALS, INC.-2021-97881

PATIENT
  Age: 38 Year
  Sex: Female

DRUGS (9)
  1. CASIRIVIMAB\IMDEVIMAB [Suspect]
     Active Substance: CASIRIVIMAB\IMDEVIMAB
     Indication: COVID-19
     Dosage: 1200 MG, SINGLE
     Route: 041
     Dates: start: 20211026, end: 20211026
  2. DESLORATADINE [Concomitant]
     Active Substance: DESLORATADINE
     Indication: Product used for unknown indication
     Dosage: 5 MG, UNK
     Route: 065
  3. MULTIVITAMIN                       /00097801/ [Concomitant]
     Indication: Product used for unknown indication
     Route: 065
  4. PROAIR HFA [Concomitant]
     Active Substance: ALBUTEROL SULFATE
     Indication: Dyspnoea
     Dosage: 90 ?G, TID PRN
     Route: 055
  5. PROAIR HFA [Concomitant]
     Active Substance: ALBUTEROL SULFATE
     Dosage: 2 PUFFS EVERY SIX HOURS
     Route: 055
     Dates: start: 20211026, end: 20211026
  6. BENADRYL                           /00000402/ [Concomitant]
     Indication: Facial discomfort
     Dosage: 50 MG, SINGLE
     Route: 042
     Dates: start: 20211026, end: 20211026
  7. EPIPEN JR [Concomitant]
     Active Substance: EPINEPHRINE
     Indication: Facial discomfort
     Dosage: UNK
     Route: 065
     Dates: start: 20211026, end: 20211026
  8. FAMOTIDINE [Concomitant]
     Active Substance: FAMOTIDINE
     Indication: Facial discomfort
     Dosage: 20 MG, UNK
     Route: 042
     Dates: start: 20211026, end: 20211026
  9. METHYLPREDNISOLONE                 /00049602/ [Concomitant]
     Indication: Facial discomfort
     Dosage: 125 MG, SINGLE
     Route: 042
     Dates: start: 20211026, end: 20211026

REACTIONS (5)
  - Chest discomfort [Recovered/Resolved]
  - Facial discomfort [Recovered/Resolved]
  - Pruritus [Recovered/Resolved]
  - Dyspnoea [Recovered/Resolved]
  - Vitreous floaters [Recovered/Resolved]

NARRATIVE: CASE EVENT DATE: 20211026
